FAERS Safety Report 13989483 (Version 1)
Quarter: 2017Q3

REPORT INFORMATION
  Report Type: Spontaneous
  Country: US (occurrence: US)
  Receive Date: 20170920
  Receipt Date: 20170920
  Transmission Date: 20171128
  Serious: No
  Sender: FDA-Public Use
  Company Number: US-TEVA-706195USA

PATIENT
  Sex: Female
  Weight: 68.1 kg

DRUGS (1)
  1. CARBAMAZEPINE. [Suspect]
     Active Substance: CARBAMAZEPINE
     Indication: TRIGEMINAL NEURALGIA
     Dates: start: 20160921, end: 20161001

REACTIONS (3)
  - Urticaria [Unknown]
  - Rash [Recovering/Resolving]
  - Chemical burn [Recovering/Resolving]
